FAERS Safety Report 12069860 (Version 4)
Quarter: 2017Q1

REPORT INFORMATION
  Report Type: Spontaneous
  Country: US (occurrence: US)
  Receive Date: 20160211
  Receipt Date: 20170223
  Transmission Date: 20170428
  Serious: Yes (Hospitalization, Congenital Anomaly, Other)
  Sender: FDA-Public Use
  Company Number: US-APOTEX-2016AP006510

PATIENT
  Sex: Male

DRUGS (2)
  1. PAXIL [Suspect]
     Active Substance: PAROXETINE HYDROCHLORIDE
     Dosage: 10MG, UNK, 2/DAY
     Route: 064
     Dates: start: 199806, end: 200012
  2. PAXIL [Suspect]
     Active Substance: PAROXETINE HYDROCHLORIDE
     Indication: ANXIETY
     Dosage: UNK
     Route: 064

REACTIONS (12)
  - Cleft palate [Not Recovered/Not Resolved]
  - Micrognathia [Unknown]
  - Neonatal respiratory distress syndrome [Unknown]
  - Developmental delay [Unknown]
  - Speech disorder [Unknown]
  - Craniofacial deformity [Unknown]
  - Dental caries [Unknown]
  - Foetal exposure during pregnancy [Unknown]
  - Cleft lip [Unknown]
  - Hernia [Unknown]
  - Pierre Robin syndrome [Unknown]
  - Hydrocele [Unknown]

NARRATIVE: CASE EVENT DATE: 19990415
